FAERS Safety Report 5391967-6 (Version None)
Quarter: 2007Q3

REPORT INFORMATION
  Report Type: 
  Country: None (occurrence: None)
  Receive Date: 20070720
  Receipt Date: 20070717
  Transmission Date: 20080115
  Serious: Yes (Hospitalization, Other)
  Sender: FDA-Public Use
  Company Number: PHEH2007US04923

PATIENT
  Age: 68 Year
  Sex: Female

DRUGS (2)
  1. ZELNORM [Suspect]
     Indication: CONSTIPATION
     Dosage: 6 MG, QID
     Route: 048
     Dates: start: 20040101, end: 20070101
  2. ZELNORM [Suspect]
     Dosage: 6 MG, QID
     Route: 048
     Dates: start: 20070101, end: 20070402

REACTIONS (3)
  - ANGINA PECTORIS [None]
  - CHEST PAIN [None]
  - CONVULSION [None]
